FAERS Safety Report 16549351 (Version 1)
Quarter: 2019Q3

REPORT INFORMATION
  Report Type: Spontaneous
  Country: US (occurrence: US)
  Receive Date: 20190710
  Receipt Date: 20190710
  Transmission Date: 20191004
  Serious: Yes (Death, Life-Threatening, Hospitalization, Other)
  Sender: FDA-Public Use
  Company Number: US-AUROBINDO-AUR-APL-2019-038204

PATIENT

DRUGS (2)
  1. DEXAMETHASONE. [Suspect]
     Active Substance: DEXAMETHASONE
     Dosage: UNK,10-DAY TAPER
     Route: 042
  2. DEXAMETHASONE. [Suspect]
     Active Substance: DEXAMETHASONE
     Indication: MENINGIOMA
     Dosage: 4 MILLIGRAM, FOUR TIMES/DAY
     Route: 042

REACTIONS (9)
  - Gastrointestinal necrosis [Fatal]
  - Multiple organ dysfunction syndrome [Fatal]
  - Brain abscess [Fatal]
  - Gastrointestinal perforation [Fatal]
  - Gastrointestinal haemorrhage [Fatal]
  - Strongyloidiasis [Fatal]
  - Enterobacter bacteraemia [Unknown]
  - Pseudomonas infection [Unknown]
  - Shock haemorrhagic [Fatal]
